FAERS Safety Report 9376387 (Version 1)
Quarter: 2013Q3

REPORT INFORMATION
  Report Type: Report from Study
  Country: GT (occurrence: GT)
  Receive Date: 20130701
  Receipt Date: 20130701
  Transmission Date: 20140515
  Serious: Yes (Hospitalization)
  Sender: FDA-Public Use
  Company Number: GT-ROCHE-1242857

PATIENT
  Age: 90 Year
  Sex: Female

DRUGS (7)
  1. BONVIVA [Suspect]
     Indication: OSTEOPOROSIS
     Route: 048
     Dates: start: 20090301
  2. ESOMEPRAZOLE [Concomitant]
     Indication: GASTRITIS
  3. LIPITOR [Concomitant]
     Indication: DYSLIPIDAEMIA
  4. LERCANIDIPINE [Concomitant]
     Indication: HYPERTENSION
  5. BISOPROLOL [Concomitant]
     Indication: HYPERTENSION
  6. ALPRAZOLAM [Concomitant]
     Indication: ANXIETY
  7. CLOPIDOGREL [Concomitant]

REACTIONS (1)
  - Cerebrovascular accident [Recovering/Resolving]
